FAERS Safety Report 10307193 (Version 2)
Quarter: 2014Q3

REPORT INFORMATION
  Report Type: Spontaneous
  Country: US (occurrence: US)
  Receive Date: 20140716
  Receipt Date: 20140716
  Transmission Date: 20150326
  Serious: No
  Sender: FDA-Public Use
  Company Number: US-009507513-1406USA011276

PATIENT
  Age: 73 Year
  Sex: Female

DRUGS (2)
  1. NASONEX [Suspect]
     Active Substance: MOMETASONE FUROATE
     Dosage: TOTAL DAILY DOSE 4 DROPS
     Route: 045
     Dates: start: 20140622, end: 20140622
  2. NASONEX [Suspect]
     Active Substance: MOMETASONE FUROATE
     Indication: HYPERSENSITIVITY
     Dosage: 2 DF, QD
     Route: 045

REACTIONS (2)
  - Drug dose omission [Unknown]
  - Accidental overdose [Unknown]

NARRATIVE: CASE EVENT DATE: 20140622
